FAERS Safety Report 8277502-3 (Version None)
Quarter: 2012Q2

REPORT INFORMATION
  Report Type: 
  Country: None (occurrence: None)
  Receive Date: 20120412
  Receipt Date: 20120403
  Transmission Date: 20120825
  Serious: Yes (Other)
  Sender: FDA-Public Use
  Company Number: CA-BRISTOL-MYERS SQUIBB COMPANY-16458408

PATIENT
  Age: 21 Year
  Sex: Female

DRUGS (6)
  1. VITAMIN D [Concomitant]
  2. PREDNISONE TAB [Concomitant]
  3. FOLIC ACID [Concomitant]
  4. PLAQUENIL [Concomitant]
  5. ORENCIA [Suspect]
     Indication: RHEUMATOID ARTHRITIS
     Dosage: NO OF INFUSIONS 11 LAST DOSE WAS 13FEB12
     Route: 042
     Dates: start: 20110526
  6. CALCIUM CARBONATE [Concomitant]

REACTIONS (1)
  - LUPUS NEPHRITIS [None]
